FAERS Safety Report 7649756-5 (Version None)
Quarter: 2011Q3

REPORT INFORMATION
  Report Type: 
  Country: None (occurrence: None)
  Receive Date: 20110802
  Receipt Date: 20110720
  Transmission Date: 20111222
  Serious: Yes (Hospitalization)
  Sender: FDA-Public Use
  Company Number: CA-ELI_LILLY_AND_COMPANY-CA201107006500

PATIENT
  Sex: Male

DRUGS (2)
  1. ZYPREXA ZYDIS [Suspect]
     Dosage: 10 MG, EACH MORNING
  2. ZYPREXA ZYDIS [Suspect]
     Dosage: 15 MG, EACH EVENING

REACTIONS (2)
  - OVERDOSE [None]
  - HOSPITALISATION [None]
